FAERS Safety Report 4745192-X (Version None)
Quarter: 2005Q3

REPORT INFORMATION
  Report Type: 
  Country: None (occurrence: None)
  Receive Date: 20050815
  Receipt Date: 20050808
  Transmission Date: 20060218
  Serious: Yes (Life-Threatening)
  Sender: FDA-Public Use
  Company Number: JP-ROCHE-413701

PATIENT
  Age: 70 Year
  Sex: Female

DRUGS (2)
  1. ROCEPHIN [Suspect]
     Indication: MIXED INCONTINENCE
     Route: 042
     Dates: start: 20050805, end: 20050805
  2. LIDOCAINE [Concomitant]
     Route: 042

REACTIONS (2)
  - ANAPHYLACTIC SHOCK [None]
  - URTICARIA [None]
